FAERS Safety Report 12630061 (Version 2)
Quarter: 2016Q3

REPORT INFORMATION
  Report Type: Spontaneous
  Country: JP (occurrence: JP)
  Receive Date: 20160808
  Receipt Date: 20160817
  Transmission Date: 20161109
  Serious: Yes (Hospitalization)
  Sender: FDA-Public Use
  Company Number: JP-009507513-1608JPN004378

PATIENT
  Age: 40 Year
  Sex: Female

DRUGS (13)
  1. EPIRUBICIN [Suspect]
     Active Substance: EPIRUBICIN
     Dosage: 3RD CYCLE
     Route: 065
     Dates: start: 20140516
  2. CYCLOPHOSPHAMIDE. [Suspect]
     Active Substance: CYCLOPHOSPHAMIDE
     Dosage: 3RD CYCLE
     Route: 065
     Dates: start: 20140516
  3. DEXAMETHASONE. [Suspect]
     Active Substance: DEXAMETHASONE
     Indication: PROPHYLAXIS OF NAUSEA AND VOMITING
     Dosage: UNK
     Route: 065
  4. FLUOROURACIL. [Suspect]
     Active Substance: FLUOROURACIL
     Indication: CHEMOTHERAPY
     Dosage: 1ST CYCLE
     Route: 065
     Dates: start: 20140404
  5. FLUOROURACIL. [Suspect]
     Active Substance: FLUOROURACIL
     Dosage: 3RD CYCLE
     Route: 065
     Dates: start: 20140516
  6. EPIRUBICIN [Suspect]
     Active Substance: EPIRUBICIN
     Dosage: 2ND CYCLE
     Route: 065
     Dates: start: 20140425
  7. DOCETAXEL. [Suspect]
     Active Substance: DOCETAXEL
     Indication: CHEMOTHERAPY
     Dosage: 1ST CYCLE
     Route: 065
     Dates: start: 20140404
  8. CYCLOPHOSPHAMIDE. [Suspect]
     Active Substance: CYCLOPHOSPHAMIDE
     Indication: CHEMOTHERAPY
     Dosage: 1ST CYCLE
     Route: 065
     Dates: start: 20140404
  9. EPIRUBICIN [Suspect]
     Active Substance: EPIRUBICIN
     Indication: CHEMOTHERAPY
     Dosage: 1ST CYCLE
     Route: 065
     Dates: start: 20140404
  10. CYCLOPHOSPHAMIDE. [Suspect]
     Active Substance: CYCLOPHOSPHAMIDE
     Dosage: 2ND CYCLE
     Route: 065
     Dates: start: 20140425
  11. DOCETAXEL. [Suspect]
     Active Substance: DOCETAXEL
     Dosage: 3RD CYCLE
     Route: 065
     Dates: start: 20140516
  12. FLUOROURACIL. [Suspect]
     Active Substance: FLUOROURACIL
     Dosage: 2ND CYCLE
     Route: 065
     Dates: start: 20140425
  13. DOCETAXEL. [Suspect]
     Active Substance: DOCETAXEL
     Dosage: 2ND CYCLE
     Route: 065
     Dates: start: 20140425

REACTIONS (2)
  - Diabetic ketoacidosis [Recovered/Resolved]
  - Diabetes mellitus [Recovered/Resolved]

NARRATIVE: CASE EVENT DATE: 201405
